FAERS Safety Report 25825979 (Version 1)
Quarter: 2025Q3

REPORT INFORMATION
  Report Type: Spontaneous
  Country: US (occurrence: US)
  Receive Date: 20250919
  Receipt Date: 20250919
  Transmission Date: 20251021
  Serious: No
  Sender: MISSION PHARMACAL COMPANY
  Company Number: US-Mission Pharmacal Company-2184900

PATIENT
  Age: 54 Year
  Sex: Female

DRUGS (8)
  1. POTASSIUM CITRATE [Suspect]
     Active Substance: POTASSIUM CITRATE
     Indication: Calculus urinary
  2. THIOLA EC [Concomitant]
     Active Substance: TIOPRONIN
     Dates: start: 20191022
  3. SODIUM BICARBONATE [Concomitant]
     Active Substance: SODIUM BICARBONATE
  4. PHENTERMINE [Concomitant]
     Active Substance: PHENTERMINE
  5. OMEPRAZOLE [Concomitant]
     Active Substance: OMEPRAZOLE
  6. OLMESARTAN [Concomitant]
     Active Substance: OLMESARTAN
  7. ESTRADIOL [Concomitant]
     Active Substance: ESTRADIOL
  8. AMLODIPINE [Concomitant]
     Active Substance: AMLODIPINE BESYLATE

REACTIONS (1)
  - Gastrointestinal disorder [Recovered/Resolved]

NARRATIVE: CASE EVENT DATE: 20250909
